FAERS Safety Report 23903966 (Version 1)
Quarter: 2024Q2

REPORT INFORMATION
  Report Type: Report from Study
  Country: US (occurrence: None)
  Receive Date: 20240527
  Receipt Date: 20240527
  Transmission Date: 20240716
  Serious: Yes (Other)
  Sender: FDA-Public Use
  Company Number: 2024A068004

PATIENT
  Sex: Female
  Weight: 93.8 kg

DRUGS (14)
  1. CALQUENCE [Suspect]
     Active Substance: ACALABRUTINIB
     Indication: Chronic lymphocytic leukaemia
     Route: 048
  2. CLONIDINE [Concomitant]
     Active Substance: CLONIDINE
  3. GLIPIZIDE [Concomitant]
     Active Substance: GLIPIZIDE
  4. SYNTHROID [Concomitant]
     Active Substance: LEVOTHYROXINE SODIUM
  5. PROTONIX [Concomitant]
     Active Substance: PANTOPRAZOLE SODIUM
  6. PREDNISONE [Concomitant]
     Active Substance: PREDNISONE
  7. METFORMIN [Concomitant]
     Active Substance: METFORMIN HYDROCHLORIDE
  8. LABETALOL [Concomitant]
     Active Substance: LABETALOL\LABETALOL HYDROCHLORIDE
  9. SIMVASTATIN [Concomitant]
     Active Substance: SIMVASTATIN
  10. ALLOPURINOL [Concomitant]
     Active Substance: ALLOPURINOL
  11. ONDANSETRON [Concomitant]
     Active Substance: ONDANSETRON
  12. VITAMINS [Concomitant]
     Active Substance: VITAMINS
  13. TYLENOL [Concomitant]
     Active Substance: ACETAMINOPHEN
  14. MAGNESIUM OXIDE [Concomitant]
     Active Substance: MAGNESIUM OXIDE

REACTIONS (1)
  - Blood magnesium decreased [Not Recovered/Not Resolved]
